FAERS Safety Report 9767757 (Version 1)
Quarter: 2013Q4

REPORT INFORMATION
  Report Type: Spontaneous
  Country: US (occurrence: None)
  Receive Date: 20131213
  Receipt Date: 20131213
  Transmission Date: 20140711
  Serious: Yes (Other)
  Sender: FDA-Public Use
  Company Number: 2013SA027501

PATIENT
  Age: 51 Year
  Sex: Female

DRUGS (1)
  1. CAPSAICIN/ UNKNOWN/ UNKNOWN [Suspect]
     Indication: PRODUCT USED FOR UNKNOWN INDICATION
     Dosage: TOPICAL, AT BEDTIME
     Dates: start: 20110523, end: 20110524

REACTIONS (5)
  - Thermal burn [None]
  - Paraesthesia [None]
  - Crying [None]
  - Screaming [None]
  - Pain [None]
